FAERS Safety Report 20432469 (Version 1)
Quarter: 2022Q1

REPORT INFORMATION
  Report Type: Spontaneous
  Country: None (occurrence: US)
  Receive Date: 20220204
  Receipt Date: 20220204
  Transmission Date: 20220423
  Serious: Yes (Death, Life-Threatening, Hospitalization)
  Sender: FDA-Public Use
  Company Number: US-Nostrum Laboratories, Inc.-2124632

PATIENT
  Age: 25 Year
  Sex: Male

DRUGS (1)
  1. MORPHINE SULFATE [Suspect]
     Active Substance: MORPHINE SULFATE
     Indication: Intentional overdose
     Route: 048

REACTIONS (5)
  - Intentional overdose [Fatal]
  - Coma [Fatal]
  - Hypotension [Fatal]
  - Hypoglycaemia [Unknown]
  - Respiratory arrest [Fatal]
